FAERS Safety Report 17278721 (Version 1)
Quarter: 2020Q1

REPORT INFORMATION
  Report Type: Spontaneous
  Country: SE (occurrence: SE)
  Receive Date: 20200116
  Receipt Date: 20200116
  Transmission Date: 20200409
  Serious: Yes (Hospitalization)
  Sender: FDA-Public Use
  Company Number: SE-PFIZER INC-2020018108

PATIENT
  Age: 33 Year
  Sex: Female

DRUGS (6)
  1. SALAZOPYRIN EN [Suspect]
     Active Substance: SULFASALAZINE
     Dosage: 1000 MG, SINGLE
     Dates: start: 20191126, end: 20191126
  2. BEHEPAN [CYANOCOBALAMIN] [Concomitant]
     Active Substance: CYANOCOBALAMIN
     Dosage: 1 MG, 1X/DAY
  3. AERIUS (DESLORATADINE) [Concomitant]
     Active Substance: DESLORATADINE
  4. ORUDIS [Concomitant]
     Active Substance: KETOPROFEN
     Dosage: 200 MG, 1X/DAY
  5. PREDNISOLONE. [Concomitant]
     Active Substance: PREDNISOLONE
     Dosage: 5 MG, 1X/DAY
  6. SALAZOPYRIN EN [Suspect]
     Active Substance: SULFASALAZINE
     Indication: RHEUMATOID ARTHRITIS
     Dosage: 2000 MG, 1X/DAY
     Route: 048
     Dates: start: 20191101, end: 20191118

REACTIONS (7)
  - Eye irritation [Recovered/Resolved]
  - Lacrimation increased [Recovered/Resolved]
  - Eye pruritus [Recovered/Resolved]
  - Pruritus [Recovered/Resolved]
  - Sensation of foreign body [Recovered/Resolved]
  - Pyrexia [Recovered/Resolved]
  - Eye pain [Recovered/Resolved]

NARRATIVE: CASE EVENT DATE: 20191118
